FAERS Safety Report 9863973 (Version 1)
Quarter: 2014Q1

REPORT INFORMATION
  Report Type: Spontaneous
  Country: US (occurrence: US)
  Receive Date: 20140203
  Receipt Date: 20140203
  Transmission Date: 20141002
  Serious: Yes (Hospitalization, Other)
  Sender: FDA-Public Use
  Company Number: US-RB-062975-14

PATIENT
  Sex: Male

DRUGS (2)
  1. BUPRENORPHINE/NALOXONE UNSPECIFIED [Suspect]
     Indication: DRUG DEPENDENCE
     Dosage: DOSING DETAILS UNKNOWN
     Route: 060
     Dates: end: 201401
  2. BUPRENORPHINE/NALOXONE UNSPECIFIED [Suspect]
     Dosage: DOSAGE DETAILS UNKNOWN
     Route: 060
     Dates: start: 201401

REACTIONS (2)
  - Pneumonia [Unknown]
  - Drug withdrawal syndrome [Recovered/Resolved]
